FAERS Safety Report 14435458 (Version 1)
Quarter: 2018Q1

REPORT INFORMATION
  Report Type: Spontaneous
  Country: US (occurrence: US)
  Receive Date: 20180125
  Receipt Date: 20180125
  Transmission Date: 20180509
  Serious: No
  Sender: FDA-Public Use
  Company Number: US-UNITED THERAPEUTICS-UNT-2017-012173

PATIENT
  Sex: Female

DRUGS (3)
  1. REMODULIN [Suspect]
     Active Substance: TREPROSTINIL
     Dosage: 0.036 ?G/KG,CONTINUING,RATE 35ML/24HR DRAWING 3ML REMODULIN (2.5MG/ML)AND 97MLDILUENTEVERY 48 HOURS
     Route: 041
     Dates: start: 20171119
  2. REMODULIN [Suspect]
     Active Substance: TREPROSTINIL
     Indication: PULMONARY ARTERIAL HYPERTENSION
     Dosage: 0.030 ?G/KG, CONTINUING
     Route: 041
     Dates: start: 20170707
  3. PREDNISONE. [Suspect]
     Active Substance: PREDNISONE
     Indication: PRODUCT USED FOR UNKNOWN INDICATION
     Dosage: UNK
     Route: 065

REACTIONS (5)
  - Weight increased [Unknown]
  - Injection site pain [Unknown]
  - Pain in extremity [Unknown]
  - Paraesthesia [Unknown]
  - Peripheral swelling [Unknown]

NARRATIVE: CASE EVENT DATE: 201707
